FAERS Safety Report 7383117-1 (Version None)
Quarter: 2011Q1

REPORT INFORMATION
  Report Type: 
  Country: None (occurrence: None)
  Receive Date: 20110330
  Receipt Date: 20110316
  Transmission Date: 20110831
  Serious: Yes (Other)
  Sender: FDA-Public Use
  Company Number: ES-RANBAXY-2011R1-43259

PATIENT
  Age: 66 Year
  Sex: Female

DRUGS (1)
  1. IBUPROFEN [Suspect]
     Indication: BACK PAIN
     Route: 065

REACTIONS (4)
  - BLISTER [None]
  - ERYTHEMA [None]
  - SKIN LESION [None]
  - CUTANEOUS LUPUS ERYTHEMATOSUS [None]
